FAERS Safety Report 11881208 (Version 3)
Quarter: 2016Q1

REPORT INFORMATION
  Report Type: Spontaneous
  Country: US (occurrence: US)
  Receive Date: 20151231
  Receipt Date: 20160204
  Transmission Date: 20160526
  Serious: Yes (Death, Hospitalization)
  Sender: FDA-Public Use
  Company Number: US-ROCHE-1685252

PATIENT
  Age: 83 Year
  Sex: Male
  Weight: 70.37 kg

DRUGS (1)
  1. ESBRIET [Suspect]
     Active Substance: PIRFENIDONE
     Indication: IDIOPATHIC PULMONARY FIBROSIS
     Dosage: WITH FOOD.
     Route: 048
     Dates: start: 20151008

REACTIONS (3)
  - Infection [Unknown]
  - Death [Fatal]
  - Lung disorder [Unknown]

NARRATIVE: CASE EVENT DATE: 20160109
